FAERS Safety Report 8212660-8 (Version None)
Quarter: 2012Q1

REPORT INFORMATION
  Report Type: 
  Country: None (occurrence: None)
  Receive Date: 20120315
  Receipt Date: 20120308
  Transmission Date: 20120608
  Serious: Yes (Hospitalization)
  Sender: FDA-Public Use
  Company Number: US-AMGEN-USASP2012015254

PATIENT
  Age: 46 Year
  Sex: Female

DRUGS (4)
  1. PROAIR HFA [Concomitant]
     Dosage: UNK
  2. SPIRIVA [Concomitant]
     Dosage: UNK
  3. ENBREL [Suspect]
     Indication: PSORIASIS
     Dosage: 50 MG, QWK
  4. ASPIRIN [Concomitant]
     Dosage: UNK MG, UNK

REACTIONS (1)
  - RESPIRATORY FAILURE [None]
